FAERS Safety Report 7484894-1 (Version None)
Quarter: 2011Q2

REPORT INFORMATION
  Report Type: 
  Country: None (occurrence: None)
  Receive Date: 20110517
  Receipt Date: 20110509
  Transmission Date: 20111010
  Serious: Yes (Other)
  Sender: FDA-Public Use
  Company Number: A0926482A

PATIENT
  Sex: Female
  Weight: 84.1 kg

DRUGS (6)
  1. ADVAIR DISKUS 100/50 [Suspect]
     Indication: EMPHYSEMA
     Dosage: 1PUFF TWICE PER DAY
     Route: 055
     Dates: end: 20110508
  2. TYLENOL W/ CODEINE NO. 2 [Concomitant]
     Indication: MIGRAINE
     Route: 065
  3. MEDRONE [Concomitant]
     Indication: PRECANCEROUS CELLS PRESENT
     Dosage: 10MG PER DAY
     Route: 065
  4. PALAFER [Concomitant]
     Indication: PROPHYLAXIS
     Route: 065
  5. PANTOLOC [Concomitant]
     Dosage: 40MG TWICE PER DAY
     Route: 065
  6. EZETIMIBE [Concomitant]
     Dosage: 10MG PER DAY
     Route: 065

REACTIONS (16)
  - PRODUCT QUALITY ISSUE [None]
  - THROAT IRRITATION [None]
  - COUGH [None]
  - DYSPHAGIA [None]
  - OROPHARYNGEAL PAIN [None]
  - FOREIGN BODY [None]
  - NERVOUSNESS [None]
  - ANAPHYLACTIC REACTION [None]
  - PHARYNGITIS [None]
  - ANXIETY [None]
  - PHARYNGEAL OEDEMA [None]
  - APHONIA [None]
  - INSOMNIA [None]
  - CHOKING [None]
  - DECREASED APPETITE [None]
  - THROAT TIGHTNESS [None]
